FAERS Safety Report 15813971 (Version 1)
Quarter: 2019Q1

REPORT INFORMATION
  Report Type: Spontaneous
  Country: US (occurrence: US)
  Receive Date: 20190111
  Receipt Date: 20190111
  Transmission Date: 20190417
  Serious: Yes (Disabling)
  Sender: FDA-Public Use
  Company Number: None

PATIENT
  Age: 50 Year
  Sex: Female
  Weight: 96.75 kg

DRUGS (11)
  1. IMODIUM [Concomitant]
     Active Substance: LOPERAMIDE HYDROCHLORIDE
  2. CAL/MA/ZINC [Concomitant]
  3. NABUMEATONE [Concomitant]
  4. RANITIDINE. [Concomitant]
     Active Substance: RANITIDINE
  5. COMPAZINE [Concomitant]
     Active Substance: PROCHLORPERAZINE MALEATE
  6. VITAMIN D3 [Concomitant]
     Active Substance: CHOLECALCIFEROL
  7. CANDESTARIB [Concomitant]
  8. ATIVAN [Concomitant]
     Active Substance: LORAZEPAM
  9. BENADRYL [Concomitant]
     Active Substance: DIPHENHYDRAMINE HYDROCHLORIDE
  10. MED MARIJUANA [Concomitant]
  11. AIMOVIG [Suspect]
     Active Substance: ERENUMAB-AOOE
     Indication: MIGRAINE
     Dosage: ?          QUANTITY:2 INJECTION(S);OTHER FREQUENCY:MONTHLY;?
     Route: 030
     Dates: start: 20180815, end: 20190111

REACTIONS (11)
  - Nausea [None]
  - Insomnia [None]
  - Constipation [None]
  - Exercise tolerance decreased [None]
  - Diarrhoea [None]
  - Dizziness [None]
  - Heart rate increased [None]
  - Feeling abnormal [None]
  - Fatigue [None]
  - Retching [None]
  - Dyspnoea [None]

NARRATIVE: CASE EVENT DATE: 20190101
